FAERS Safety Report 25015739 (Version 1)
Quarter: 2025Q1

REPORT INFORMATION
  Report Type: Spontaneous
  Country: US (occurrence: US)
  Receive Date: 20250227
  Receipt Date: 20250227
  Transmission Date: 20250409
  Serious: No
  Sender: ADVANZ PHARMA
  Company Number: US-ADVANZ PHARMA-202502001250

PATIENT

DRUGS (6)
  1. HYDROXYCHLOROQUINE [Suspect]
     Active Substance: HYDROXYCHLOROQUINE
  2. FOSAMAX [Suspect]
     Active Substance: ALENDRONATE SODIUM
  3. LEVOTHYROXINE SODIUM [Suspect]
     Active Substance: LEVOTHYROXINE SODIUM
  4. ZOLOFT [Suspect]
     Active Substance: SERTRALINE HYDROCHLORIDE
  5. ATIVAN [Suspect]
     Active Substance: LORAZEPAM
  6. NORVASC [Suspect]
     Active Substance: AMLODIPINE BESYLATE

REACTIONS (9)
  - Sciatica [Unknown]
  - Back pain [Unknown]
  - Dry mouth [Unknown]
  - Arthralgia [Unknown]
  - Dry eye [Unknown]
  - Vertigo [Unknown]
  - Fatigue [Unknown]
  - Weight decreased [Unknown]
  - Diarrhoea [Unknown]
